FAERS Safety Report 23811120 (Version 1)
Quarter: 2024Q2

REPORT INFORMATION
  Report Type: Spontaneous
  Country: US (occurrence: US)
  Receive Date: 20240502
  Receipt Date: 20240502
  Transmission Date: 20240716
  Serious: No
  Sender: FDA-Public Use
  Company Number: US-009507513-2404USA012436

PATIENT
  Sex: Female

DRUGS (1)
  1. BELSOMRA [Suspect]
     Active Substance: SUVOREXANT
     Indication: Poor quality sleep
     Dosage: 10 MILLIGRAM, QPM (NIGHTLY)
     Route: 048

REACTIONS (1)
  - Drug ineffective [Unknown]
